FAERS Safety Report 9174899 (Version 1)
Quarter: 2013Q1

REPORT INFORMATION
  Report Type: Spontaneous
  Country: ES (occurrence: ES)
  Receive Date: 20130320
  Receipt Date: 20130320
  Transmission Date: 20140127
  Serious: Yes (Hospitalization, Other)
  Sender: FDA-Public Use
  Company Number: ES-ELI_LILLY_AND_COMPANY-ES201303002181

PATIENT
  Age: 51 Year
  Sex: Male

DRUGS (5)
  1. CYMBALTA [Suspect]
     Dosage: UNK
     Route: 048
     Dates: start: 2011, end: 20121026
  2. OLANZAPINE [Suspect]
     Dosage: 5 MG, QD
     Route: 048
     Dates: start: 20121009, end: 20121029
  3. LINEZOLID [Concomitant]
     Dosage: 600 MG, BID
     Route: 042
     Dates: start: 20121018, end: 20121024
  4. MEROPENEM [Concomitant]
     Dosage: UNK
     Route: 042
     Dates: start: 20121009, end: 20121029
  5. LYRICA [Concomitant]
     Dosage: UNK
     Route: 048
     Dates: start: 2011, end: 20121029

REACTIONS (2)
  - Serotonin syndrome [Recovered/Resolved]
  - Drug interaction [Recovered/Resolved]
